FAERS Safety Report 7603724-8 (Version None)
Quarter: 2011Q2

REPORT INFORMATION
  Report Type: 
  Country: None (occurrence: None)
  Receive Date: 20110630
  Receipt Date: 20110617
  Transmission Date: 20111010
  Serious: Yes (Death)
  Sender: FDA-Public Use
  Company Number: TPG2011A01414

PATIENT
  Sex: Male

DRUGS (1)
  1. ACTOS [Suspect]
     Indication: DIABETES MELLITUS
     Dosage: PER ORAL
     Route: 048

REACTIONS (2)
  - BLADDER CANCER [None]
  - SIGNET-RING CELL CARCINOMA [None]
